FAERS Safety Report 9897839 (Version 1)
Quarter: 2014Q1

REPORT INFORMATION
  Report Type: Spontaneous
  Country: US (occurrence: US)
  Receive Date: 20140214
  Receipt Date: 20140214
  Transmission Date: 20141002
  Serious: Yes (Other)
  Sender: FDA-Public Use
  Company Number: US-PFIZER INC-2014037346

PATIENT
  Age: 61 Year
  Sex: Female
  Weight: 118 kg

DRUGS (5)
  1. PHOSPHOLINE IODIDE [Suspect]
     Indication: GLAUCOMA
     Dosage: 0.5 % OPHTHALMIC SOLUTION
     Route: 047
  2. COSOPT [Concomitant]
     Indication: GLAUCOMA
     Dosage: 2 GTT, 2X/DAY
  3. ACULAR [Concomitant]
     Indication: GLAUCOMA
     Dosage: UNK, 2X/DAY
     Route: 047
  4. TRAVATAN [Concomitant]
     Indication: GLAUCOMA
     Dosage: UNK, 1X/DAY
  5. NEPTAZANE [Concomitant]
     Indication: GLAUCOMA
     Dosage: UNK, 2X/DAY

REACTIONS (1)
  - Intraocular pressure increased [Recovered/Resolved]
